FAERS Safety Report 7544247-4 (Version None)
Quarter: 2011Q2

REPORT INFORMATION
  Report Type: 
  Country: None (occurrence: None)
  Receive Date: 20110613
  Receipt Date: 20070626
  Transmission Date: 20111010
  Serious: Yes (Other)
  Sender: FDA-Public Use
  Company Number: PHMT2007CA01413

PATIENT
  Sex: Female
  Weight: 65.1 kg

DRUGS (3)
  1. IBUPROFEN [Concomitant]
     Dosage: 400 MG, BID
  2. TYLENOL-500 [Concomitant]
     Dosage: 500 MG, BID
     Route: 048
  3. ZOMETA [Suspect]
     Indication: BREAST CANCER
     Dosage: 4 MG FOR EVERY 4 WEEKS
     Route: 042
     Dates: start: 20070507

REACTIONS (8)
  - GINGIVAL BLEEDING [None]
  - MUSCULAR WEAKNESS [None]
  - METASTASES TO BONE [None]
  - WEIGHT DECREASED [None]
  - ASTHENIA [None]
  - DISEASE PROGRESSION [None]
  - SENSITIVITY OF TEETH [None]
  - BREAST CANCER METASTATIC [None]
